FAERS Safety Report 5945949-3 (Version None)
Quarter: 2008Q4

REPORT INFORMATION
  Report Type: 
  Country: None (occurrence: None)
  Receive Date: 20081107
  Receipt Date: 20081107
  Transmission Date: 20090506
  Serious: Yes (Other)
  Sender: FDA-Public Use
  Company Number: None

PATIENT
  Age: 38 Year
  Sex: Female
  Weight: 70.3075 kg

DRUGS (1)
  1. CHORIONIC GONADOTROPIN [Suspect]
     Indication: OOCYTE HARVEST
     Dosage: 5,000 USP UNITS ONCE SQ ONE TIME DOSE
     Route: 058
     Dates: start: 20081029, end: 20081029

REACTIONS (3)
  - MEDICATION ERROR [None]
  - PRODUCT QUALITY ISSUE [None]
  - URINE HUMAN CHORIONIC GONADOTROPIN NEGATIVE [None]
